FAERS Safety Report 9319910 (Version 1)
Quarter: 2013Q2

REPORT INFORMATION
  Report Type: Report from Study
  Country: GB (occurrence: GB)
  Receive Date: 20130530
  Receipt Date: 20130530
  Transmission Date: 20140414
  Serious: Yes (Hospitalization)
  Sender: FDA-Public Use
  Company Number: GB-BRISTOL-MYERS SQUIBB COMPANY-18935262

PATIENT
  Age: 66 Year
  Sex: Male

DRUGS (3)
  1. APIXABAN [Suspect]
     Indication: THROMBOSIS PROPHYLAXIS
     Route: 048
     Dates: end: 20130204
  2. TILDIEM [Concomitant]
     Dates: start: 20090120
  3. RAMIPRIL [Concomitant]
     Dates: start: 20070907

REACTIONS (1)
  - Epistaxis [Recovered/Resolved]
